FAERS Safety Report 10412194 (Version 2)
Quarter: 2014Q3

REPORT INFORMATION
  Report Type: Spontaneous
  Country: GB (occurrence: GB)
  Receive Date: 20140827
  Receipt Date: 20140827
  Transmission Date: 20150326
  Serious: Yes (Other)
  Sender: FDA-Public Use
  Company Number: GB-LEO PHARMA-228197

PATIENT
  Age: 21 Year
  Sex: Female
  Weight: 85 kg

DRUGS (1)
  1. PICATO [Suspect]
     Active Substance: INGENOL MEBUTATE
     Indication: ACTINIC KERATOSIS
     Route: 061
     Dates: start: 20140528, end: 20140605

REACTIONS (3)
  - Incorrect drug administration duration [Unknown]
  - Trigeminal nerve disorder [Recovering/Resolving]
  - Application site ulcer [Recovering/Resolving]

NARRATIVE: CASE EVENT DATE: 20140528
